FAERS Safety Report 9059889 (Version 2)
Quarter: 2013Q1

REPORT INFORMATION
  Report Type: Spontaneous
  Country: IL (occurrence: IL)
  Receive Date: 20130212
  Receipt Date: 20130225
  Transmission Date: 20140127
  Serious: Yes (Hospitalization)
  Sender: FDA-Public Use
  Company Number: IL-BRISTOL-MYERS SQUIBB COMPANY-17366204

PATIENT
  Age: 44 Year
  Sex: Male

DRUGS (10)
  1. METFORMIN HCL [Suspect]
     Indication: TYPE 2 DIABETES MELLITUS
     Dosage: GLUCOPRACE RETARD(METFORMIN HCL) :850MH:3 IN 1D:UNK-22DEC2009
     Route: 048
     Dates: start: 20091223
  2. TRITACE [Concomitant]
     Route: 048
     Dates: start: 2009
  3. CARDIOLOC [Concomitant]
     Route: 048
     Dates: start: 2009
  4. CARTIA [Concomitant]
     Route: 048
     Dates: start: 2009
  5. LOSEC [Concomitant]
     Route: 048
     Dates: start: 2009
  6. LIPITOR [Concomitant]
     Route: 048
     Dates: start: 2009
  7. RAMIPRIL [Concomitant]
     Route: 048
     Dates: start: 2009
  8. BISOPROLOL FUMARATE [Concomitant]
     Route: 048
     Dates: start: 2009
  9. OMEPRAZOLE [Concomitant]
     Route: 048
     Dates: start: 2009
  10. ATORVASTATIN CALCIUM [Concomitant]
     Route: 048
     Dates: start: 2009

REACTIONS (2)
  - Gastroenteritis [Recovered/Resolved]
  - Colitis [Recovered/Resolved]
